FAERS Safety Report 21824999 (Version 2)
Quarter: 2023Q1

REPORT INFORMATION
  Report Type: Spontaneous
  Country: US (occurrence: US)
  Receive Date: 20230105
  Receipt Date: 20230118
  Transmission Date: 20230417
  Serious: Yes (Hospitalization)
  Sender: FDA-Public Use
  Company Number: US-TEVA-2022-US-2841359

PATIENT
  Age: 44 Year
  Sex: Male

DRUGS (8)
  1. CLOPIDOGREL [Suspect]
     Active Substance: CLOPIDOGREL BISULFATE
     Indication: Antiplatelet therapy
     Dosage: SINGLE DOSE , 300 MG
     Route: 065
  2. CLOPIDOGREL [Suspect]
     Active Substance: CLOPIDOGREL BISULFATE
     Dosage: 75 MILLIGRAM DAILY; ONCE A DAY
     Route: 065
  3. ASPIRIN [Suspect]
     Active Substance: ASPIRIN
     Indication: Antiplatelet therapy
     Dosage: SINGLE DOSE , 325 MG
     Route: 065
  4. ASPIRIN [Suspect]
     Active Substance: ASPIRIN
     Dosage: 81 MILLIGRAM DAILY; ONCE A DAY
     Route: 065
  5. HEPARIN [Suspect]
     Active Substance: HEPARIN SODIUM
     Indication: Anticoagulant therapy
     Dosage: 5000 UNIT
     Route: 065
  6. EPOPROSTENOL [Suspect]
     Active Substance: EPOPROSTENOL
     Indication: Acute respiratory distress syndrome
     Route: 055
  7. EPINEPHRINE [Suspect]
     Active Substance: EPINEPHRINE
     Indication: Bronchial haemorrhage
     Dosage: LAVAGE
     Route: 065
  8. SALINE [Suspect]
     Active Substance: SODIUM CHLORIDE
     Indication: Bronchial haemorrhage
     Route: 065

REACTIONS (2)
  - Bronchial haemorrhage [Recovered/Resolved]
  - Drug ineffective [Unknown]
